FAERS Safety Report 14800327 (Version 1)
Quarter: 2018Q2

REPORT INFORMATION
  Report Type: Spontaneous
  Country: AT (occurrence: AT)
  Receive Date: 20180424
  Receipt Date: 20180424
  Transmission Date: 20180711
  Serious: Yes (Other)
  Sender: FDA-Public Use
  Company Number: AT-MYLANLABS-2018M1025498

PATIENT

DRUGS (4)
  1. MITOXANTRONE [Suspect]
     Active Substance: MITOXANTRONE HYDROCHLORIDE
     Indication: NON-HODGKIN^S LYMPHOMA
     Dosage: 3 MG/M2, UNK, 3 MG/M2 ON DAYS 1-3 TREATMENT WAS REPEATED FOR EVERY THREE WEEKS
     Route: 042
  2. MESNA. [Concomitant]
     Active Substance: MESNA
     Indication: PROPHYLAXIS
     Dosage: 900 MG, QD, 3X300 MG DAILY. TREATMENT WAS REPEATED FOR EVERY THREE WEEKS
     Route: 065
  3. VP-16 [Suspect]
     Active Substance: ETOPOSIDE
     Indication: NON-HODGKIN^S LYMPHOMA
     Dosage: 65 MG/M2, UNK, 65 MG/M2 ON DAYS 1- 3 TREATMENT WAS REPEATED FOR EVERY THREE WEEKS
     Route: 042
  4. HOLOXAN [Suspect]
     Active Substance: IFOSFAMIDE
     Indication: NON-HODGKIN^S LYMPHOMA
     Dosage: 650 MG/M2, UNK, NON-HODGKIN^S LYMPHOMA
     Route: 042

REACTIONS (1)
  - Thrombocytopenia [Unknown]
